FAERS Safety Report 14596148 (Version 2)
Quarter: 2018Q2

REPORT INFORMATION
  Report Type: Spontaneous
  Country: GB (occurrence: GB)
  Receive Date: 20180303
  Receipt Date: 20180627
  Transmission Date: 20180711
  Serious: Yes (Other)
  Sender: FDA-Public Use
  Company Number: GB-AUROBINDO-AUR-APL-2018-010931

PATIENT

DRUGS (4)
  1. FOLIC ACID. [Suspect]
     Active Substance: FOLIC ACID
     Indication: PRODUCT USED FOR UNKNOWN INDICATION
     Dosage: UNK
  2. FLUOXETINE [Suspect]
     Active Substance: FLUOXETINE HYDROCHLORIDE
     Indication: COLITIS ULCERATIVE
     Dosage: UNK
  3. AZATHIOPRINE SANDOZ [Suspect]
     Active Substance: AZATHIOPRINE
     Dosage: UNK ()
     Route: 065
  4. AZATHIOPRINE SANDOZ [Suspect]
     Active Substance: AZATHIOPRINE
     Indication: COLITIS ULCERATIVE
     Dosage: UNK

REACTIONS (2)
  - Feeling abnormal [Unknown]
  - Suicidal ideation [Unknown]
